FAERS Safety Report 6234616-7 (Version None)
Quarter: 2009Q2

REPORT INFORMATION
  Report Type: 
  Country: None (occurrence: None)
  Receive Date: 20090618
  Receipt Date: 20090612
  Transmission Date: 20091009
  Serious: Yes (Hospitalization)
  Sender: FDA-Public Use
  Company Number: KE-GILEAD-2009-0022589

PATIENT
  Age: 47 Year
  Sex: Male
  Weight: 56 kg

DRUGS (7)
  1. TRUVADA [Suspect]
     Indication: HIV INFECTION
     Route: 048
     Dates: start: 20090414
  2. STOCRIN [Suspect]
     Indication: HIV INFECTION
     Route: 048
     Dates: start: 20090414
  3. RIFAMPIN [Concomitant]
  4. SEPTRIN [Concomitant]
  5. ISONIAZID [Concomitant]
  6. PYRAZINAMIDE [Concomitant]
  7. ETHAMBUTOL HCL [Concomitant]

REACTIONS (1)
  - PNEUMONIA BACTERIAL [None]
